FAERS Safety Report 8625640-5 (Version None)
Quarter: 2012Q3

REPORT INFORMATION
  Report Type: 
  Country: None (occurrence: None)
  Receive Date: 20120827
  Receipt Date: 20120822
  Transmission Date: 20120928
  Serious: Yes (Hospitalization, Other)
  Sender: FDA-Public Use
  Company Number: SE-ROCHE-1105736

PATIENT
  Sex: Female

DRUGS (2)
  1. CONCERTA [Suspect]
     Indication: PRODUCT USED FOR UNKNOWN INDICATION
  2. CLONAZEPAM [Suspect]
     Indication: PRODUCT USED FOR UNKNOWN INDICATION

REACTIONS (16)
  - DRUG WITHDRAWAL SYNDROME [None]
  - POST-TRAUMATIC STRESS DISORDER [None]
  - ZINC DEFICIENCY [None]
  - ASTHENIA [None]
  - DEPRESSION [None]
  - SUICIDAL IDEATION [None]
  - DISTURBANCE IN ATTENTION [None]
  - ANXIETY [None]
  - SKIN DISORDER [None]
  - PAIN [None]
  - VOMITING [None]
  - FATIGUE [None]
  - TREMOR [None]
  - SOCIAL PHOBIA [None]
  - INJURY [None]
  - HEART RATE INCREASED [None]
